FAERS Safety Report 6341892-9 (Version None)
Quarter: 2009Q3

REPORT INFORMATION
  Report Type: 
  Country: None (occurrence: None)
  Receive Date: 20090903
  Receipt Date: 20090818
  Transmission Date: 20100115
  Serious: Yes (Life-Threatening, Other)
  Sender: FDA-Public Use
  Company Number: UK313213

PATIENT
  Sex: Female
  Weight: 5.5 kg

DRUGS (20)
  1. KEPIVANCE [Suspect]
     Indication: AUTOIMMUNE DISORDER
     Dosage: (60 MCG/KG)
     Dates: start: 20081010, end: 20081012
  2. TREOSULFAN [Concomitant]
  3. MEROPENEM [Concomitant]
  4. TEICOPLANIN [Concomitant]
  5. CODEINE SULFATE [Concomitant]
  6. NYSTATIN [Concomitant]
  7. AMBISOME [Concomitant]
  8. CETIRIZINE HCL [Concomitant]
  9. NIFEDIPINE [Concomitant]
  10. COTRIM [Concomitant]
  11. ONDANSETRON [Concomitant]
  12. BUDESONIDE [Concomitant]
  13. CIPROFLAXACIN [Concomitant]
  14. PREDNISOLONE [Concomitant]
  15. TACROLIMUS [Concomitant]
  16. MESNA [Concomitant]
  17. ACYCLOVIR [Concomitant]
  18. CYCLOPHOSPHAMIDE [Concomitant]
  19. DIVIGEL [Concomitant]
  20. CYCLOSPORINE [Concomitant]

REACTIONS (4)
  - CONVULSION [None]
  - OFF LABEL USE [None]
  - RASH [None]
  - STEM CELL TRANSPLANT [None]
